FAERS Safety Report 14682898 (Version 2)
Quarter: 2018Q2

REPORT INFORMATION
  Report Type: Report from Study
  Country: US (occurrence: US)
  Receive Date: 20180327
  Receipt Date: 20180410
  Transmission Date: 20180711
  Serious: Yes (Death, Other)
  Sender: FDA-Public Use
  Company Number: US-GILEAD-2018-0328909

PATIENT
  Age: 50 Year
  Sex: Male

DRUGS (9)
  1. TRUSOPT [Concomitant]
     Active Substance: DORZOLAMIDE HYDROCHLORIDE
  2. NORVASC [Concomitant]
     Active Substance: AMLODIPINE BESYLATE
  3. AMBRISENTAN [Suspect]
     Active Substance: AMBRISENTAN
     Indication: PULMONARY ARTERIAL HYPERTENSION
     Dosage: 10 MG, QD
     Route: 065
  4. LUMIGAN [Concomitant]
     Active Substance: BIMATOPROST
  5. CRESTOR [Concomitant]
     Active Substance: ROSUVASTATIN CALCIUM
  6. DIAMOX                             /00016901/ [Concomitant]
     Active Substance: ACETAZOLAMIDE
  7. ADCIRCA [Concomitant]
     Active Substance: TADALAFIL
  8. GABAPENTIN. [Concomitant]
     Active Substance: GABAPENTIN
  9. TRAVATAN Z [Concomitant]
     Active Substance: TRAVOPROST

REACTIONS (1)
  - Death [Fatal]

NARRATIVE: CASE EVENT DATE: 201803
